FAERS Safety Report 19405489 (Version 2)
Quarter: 2024Q1

REPORT INFORMATION
  Report Type: Spontaneous
  Country: IT (occurrence: IT)
  Receive Date: 20210611
  Receipt Date: 20240315
  Transmission Date: 20240409
  Serious: Yes (Death, Hospitalization, Other)
  Sender: FDA-Public Use
  Company Number: IT-EMA-DD-20210510-FAIZAN_M-105303

PATIENT
  Age: 64 Year
  Sex: Male

DRUGS (10)
  1. METHYLPREDNISOLONE [Suspect]
     Active Substance: METHYLPREDNISOLONE
     Indication: COVID-19 pneumonia
     Dosage: 1 MG/KG
  2. METHYLPREDNISOLONE [Suspect]
     Active Substance: METHYLPREDNISOLONE
     Dosage: 0.5 MG/KG
  3. ANTI-THYMOCYTE GLOBULIN (RABBIT) NOS [Suspect]
     Active Substance: LAPINE T-LYMPHOCYTE IMMUNE GLOBULIN
     Indication: Bone marrow conditioning regimen
     Dosage: UNK
  4. CYCLOSPORINE [Suspect]
     Active Substance: CYCLOSPORINE
     Indication: Immunosuppressant drug therapy
     Dosage: UNK
  5. TOCILIZUMAB [Suspect]
     Active Substance: TOCILIZUMAB
     Indication: COVID-19 pneumonia
     Dosage: 6 MG/KG, 1X
  6. MYCOPHENOLATE MOFETIL [Suspect]
     Active Substance: MYCOPHENOLATE MOFETIL
     Indication: Immunosuppressant drug therapy
     Dosage: UNK
  7. ISAVUCONAZOLE [Suspect]
     Active Substance: ISAVUCONAZOLE
     Indication: Antifungal prophylaxis
     Dosage: UNK
  8. ACYCLOVIR [Concomitant]
     Active Substance: ACYCLOVIR
     Indication: Prophylaxis
     Dosage: UNK
  9. LETERMOVIR [Concomitant]
     Active Substance: LETERMOVIR
     Indication: Antiviral prophylaxis
     Dosage: UNK
  10. ATOVAQUONE [Concomitant]
     Active Substance: ATOVAQUONE
     Indication: Parasitic infection prophylaxis
     Dosage: UNK

REACTIONS (18)
  - COVID-19 pneumonia [Fatal]
  - Pyrexia [Fatal]
  - Lung infiltration [Fatal]
  - Lower respiratory tract infection viral [Fatal]
  - Pneumonia viral [Fatal]
  - Lung opacity [Fatal]
  - Aspergillus infection [Fatal]
  - Hepatic failure [Fatal]
  - Altered state of consciousness [Fatal]
  - Hyperbilirubinaemia [Fatal]
  - Respiratory failure [Fatal]
  - Pericardial effusion [Fatal]
  - Pneumothorax [Fatal]
  - Pneumomediastinum [Fatal]
  - Pulmonary pneumatocele [Fatal]
  - Pleural effusion [Fatal]
  - Lymphadenopathy mediastinal [Fatal]
  - Septic shock [Recovered/Resolved]
